FAERS Safety Report 8417409 (Version 2)
Quarter: 2013Q2

REPORT INFORMATION
  Report Type: Spontaneous
  Country: BR (occurrence: BR)
  Receive Date: 20120221
  Receipt Date: 20130523
  Transmission Date: 20140414
  Serious: Yes (Hospitalization, Other)
  Sender: FDA-Public Use
  Company Number: BR-AMGEN-BRASP2012002541

PATIENT
  Age: 54 Year
  Sex: Female
  Weight: 51.8 kg

DRUGS (6)
  1. ENBREL [Suspect]
     Indication: RHEUMATOID ARTHRITIS
     Dosage: 50 MG, ONCE WEEKLY
     Route: 058
     Dates: start: 201006
  2. ENBREL [Suspect]
     Dosage: 25 MG, 2X/WEEK
     Route: 058
     Dates: end: 201101
  3. NEO FOLICO [Concomitant]
     Dosage: ONE TABLET, ONCE WEEKLY
  4. PURAN T4 [Concomitant]
     Dosage: 88 MG, 1X/DAY
  5. TECNOMET                           /00113801/ [Concomitant]
     Dosage: 12 MG, ONCE WEEKLY
  6. METICORTEN [Concomitant]
     Dosage: 5 MG, 1X/DAY

REACTIONS (6)
  - Liver disorder [Unknown]
  - Cholelithiasis [Unknown]
  - Immune system disorder [Unknown]
  - Memory impairment [Unknown]
  - Influenza [Unknown]
  - Pharyngitis [Unknown]
